FAERS Safety Report 24758019 (Version 1)
Quarter: 2024Q4

REPORT INFORMATION
  Report Type: Spontaneous
  Country: AE (occurrence: AE)
  Receive Date: 20241220
  Receipt Date: 20241220
  Transmission Date: 20250115
  Serious: Yes (Hospitalization, Other)
  Sender: NEXUS PHARMACEUTICALS
  Company Number: AE-Nexus Pharma-000348

PATIENT
  Age: 38 Year
  Sex: Male

DRUGS (5)
  1. COLISTIMETHATE SODIUM [Suspect]
     Active Substance: COLISTIMETHATE SODIUM
     Indication: Evidence based treatment
     Dosage: LOADING DOSE OF 9 MILLION UNITS, FOLLOWED BY 4 MILLION UNITS EVERY 12 H
  2. MEROPENEM [Concomitant]
     Active Substance: MEROPENEM
     Indication: Evidence based treatment
     Dosage: 1 G EVERY 12 H
  3. TACROLIMUS [Concomitant]
     Active Substance: TACROLIMUS
     Indication: Immunosuppression
     Dosage: 2 MG BID (TARGET TROUGH LEVEL 4-6 NG/ML)
  4. MYCOPHENOLIC ACID [Concomitant]
     Active Substance: MYCOPHENOLIC ACID
     Indication: Immunosuppression
     Dosage: 250 MG BID
  5. PREDNISOLONE [Concomitant]
     Active Substance: PREDNISOLONE
     Indication: Immunosuppression
     Dosage: 5 MG DAILY

REACTIONS (2)
  - Bulbar palsy [Recovered/Resolved]
  - Neurotoxicity [Recovered/Resolved]
